FAERS Safety Report 18417461 (Version 1)
Quarter: 2020Q4

REPORT INFORMATION
  Report Type: Spontaneous
  Country: US (occurrence: US)
  Receive Date: 20201022
  Receipt Date: 20201022
  Transmission Date: 20210114
  Serious: No
  Sender: FDA-Public Use
  Company Number: 2020SGN02298

PATIENT
  Sex: Female

DRUGS (4)
  1. TUKYSA [Suspect]
     Active Substance: TUCATINIB
     Dosage: 150 MG, BID
     Route: 048
  2. HERCEPTIN [Suspect]
     Active Substance: TRASTUZUMAB
     Indication: BREAST CANCER FEMALE
  3. CAPECITABINE. [Suspect]
     Active Substance: CAPECITABINE
     Indication: BREAST CANCER FEMALE
  4. TUKYSA [Suspect]
     Active Substance: TUCATINIB
     Indication: BREAST CANCER FEMALE
     Dosage: UNK UNK, BID
     Route: 048

REACTIONS (31)
  - Emotional disorder [Unknown]
  - Confusional state [Unknown]
  - Tearfulness [Unknown]
  - Renal pain [Unknown]
  - Depression [Unknown]
  - Decreased appetite [Unknown]
  - Unevaluable event [Unknown]
  - Musculoskeletal stiffness [Unknown]
  - Papule [Unknown]
  - Proctalgia [Unknown]
  - Diarrhoea [Unknown]
  - Social problem [Unknown]
  - Insomnia [Unknown]
  - Neck pain [Unknown]
  - Abdominal pain upper [Unknown]
  - Arthralgia [Unknown]
  - Memory impairment [Unknown]
  - Depressed mood [Unknown]
  - Tremor [Unknown]
  - Brain oedema [Unknown]
  - Weight increased [Unknown]
  - Heart rate increased [Unknown]
  - Illness [Unknown]
  - Stress [Unknown]
  - Fatigue [Unknown]
  - Pruritus [Unknown]
  - Angina pectoris [Unknown]
  - Hemiparesis [Unknown]
  - Nail discolouration [Unknown]
  - Pain in extremity [Unknown]
  - Headache [Unknown]
